FAERS Safety Report 10186458 (Version 1)
Quarter: 2014Q2

REPORT INFORMATION
  Report Type: Spontaneous
  Country: US (occurrence: US)
  Receive Date: 20140521
  Receipt Date: 20140521
  Transmission Date: 20141212
  Serious: No
  Sender: FDA-Public Use
  Company Number: US-ASTRAZENECA-2013SE73108

PATIENT
  Age: 51 Year
  Sex: Female
  Weight: 138.8 kg

DRUGS (3)
  1. PULMICORT FLEXHALER [Suspect]
     Indication: ASTHMA
     Dosage: 180 MCG 1 PUFF BID
     Route: 055
     Dates: start: 20130927
  2. PULMICORT FLEXHALER [Suspect]
     Indication: MULTIPLE ALLERGIES
     Dosage: 180 MCG 1 PUFF BID
     Route: 055
     Dates: start: 20130927
  3. LISINOPRIL [Suspect]
     Indication: BLOOD PRESSURE ABNORMAL
     Route: 048
     Dates: start: 2011

REACTIONS (5)
  - Oropharyngeal pain [Not Recovered/Not Resolved]
  - Throat tightness [Not Recovered/Not Resolved]
  - Total lung capacity decreased [Unknown]
  - Asthma [Unknown]
  - Off label use [Unknown]
